FAERS Safety Report 6073969-X (Version None)
Quarter: 2009Q1

REPORT INFORMATION
  Report Type: 
  Country: None (occurrence: None)
  Receive Date: 20090211
  Receipt Date: 20090203
  Transmission Date: 20090719
  Serious: Yes (Hospitalization, Other)
  Sender: FDA-Public Use
  Company Number: PHHY2008JP33120

PATIENT
  Sex: Female
  Weight: 62 kg

DRUGS (4)
  1. DIOVAN [Suspect]
     Indication: HYPERTENSION
     Dosage: 80 MG, ONCE/SINGLE
     Route: 048
     Dates: start: 20071002, end: 20080603
  2. ASPIRIN [Concomitant]
     Dosage: 100 MG, UNK
     Route: 048
     Dates: start: 20071002
  3. ACTOS [Concomitant]
     Dosage: 15 MG, UNK
     Route: 048
     Dates: start: 20071002
  4. SUNRYTHM [Concomitant]
     Dosage: 100 MG, UNK
     Route: 048
     Dates: start: 20071002

REACTIONS (4)
  - ANGINA PECTORIS [None]
  - BLOOD PRESSURE INCREASED [None]
  - CREATININE URINE INCREASED [None]
  - MICROALBUMINURIA [None]
